FAERS Safety Report 5624092-7 (Version None)
Quarter: 2008Q1

REPORT INFORMATION
  Report Type: 
  Country: None (occurrence: None)
  Receive Date: 20080213
  Receipt Date: 20070913
  Transmission Date: 20080703
  Serious: No
  Sender: FDA-Public Use
  Company Number: US-KINGPHARMUSA00001-K200701190

PATIENT

DRUGS (3)
  1. EPIPEN [Suspect]
     Dosage: UNK, SINGLE
     Dates: start: 20070913, end: 20070913
  2. CALCIUM GLUCONATE [Concomitant]
  3. ASPIRIN [Concomitant]
     Dosage: UNK, QD

REACTIONS (6)
  - ACCIDENTAL EXPOSURE [None]
  - INJECTION SITE ANAESTHESIA [None]
  - INJECTION SITE COLDNESS [None]
  - INJECTION SITE HAEMORRHAGE [None]
  - INJECTION SITE PAIN [None]
  - INJECTION SITE PALLOR [None]
